FAERS Safety Report 4688613-3 (Version None)
Quarter: 2005Q2

REPORT INFORMATION
  Report Type: 
  Country: None (occurrence: None)
  Receive Date: 20050608
  Receipt Date: 20050408
  Transmission Date: 20051028
  Serious: No
  Sender: FDA-Public Use
  Company Number: 2005-BP-05827BP

PATIENT
  Age: 84 Year
  Sex: Female

DRUGS (3)
  1. SPIRIVA [Suspect]
     Indication: RESPIRATORY DISORDER
     Dosage: 18 MCG (18 MCG), IH
     Route: 055
     Dates: start: 20050404, end: 20050406
  2. NORVASC [Concomitant]
  3. LEVOXYL [Concomitant]

REACTIONS (2)
  - HEART RATE INCREASED [None]
  - JOINT SWELLING [None]
